FAERS Safety Report 12169760 (Version 1)
Quarter: 2016Q1

REPORT INFORMATION
  Report Type: Spontaneous
  Country: CH (occurrence: CH)
  Receive Date: 20160310
  Receipt Date: 20160310
  Transmission Date: 20160526
  Serious: Yes (Other)
  Sender: FDA-Public Use
  Company Number: CH-GILEAD-2016-0201860

PATIENT
  Age: 37 Year
  Sex: Female
  Weight: 53 kg

DRUGS (8)
  1. TRUVADA [Suspect]
     Active Substance: EMTRICITABINE\TENOFOVIR DISOPROXIL FUMARATE
     Dosage: 25 MG, UNK
     Route: 065
     Dates: start: 201109, end: 201512
  2. TRUVADA [Suspect]
     Active Substance: EMTRICITABINE\TENOFOVIR DISOPROXIL FUMARATE
     Dosage: 25 MG, UNK
     Route: 065
     Dates: start: 201601
  3. RALTEGRAVIR. [Suspect]
     Active Substance: RALTEGRAVIR
     Indication: HIV INFECTION
     Dosage: 800 MG, QD
     Route: 065
     Dates: start: 201109, end: 201512
  4. RALTEGRAVIR. [Suspect]
     Active Substance: RALTEGRAVIR
     Dosage: 800 MG, QD
     Route: 065
     Dates: start: 201512, end: 201601
  5. ATAZANAVIR [Suspect]
     Active Substance: ATAZANAVIR
     Indication: HIV INFECTION
     Dosage: UNK
     Route: 065
     Dates: start: 200807, end: 201109
  6. ABACAVIR. [Suspect]
     Active Substance: ABACAVIR
     Indication: HIV INFECTION
     Dosage: UNK
     Route: 065
     Dates: start: 201512, end: 201601
  7. TRUVADA [Suspect]
     Active Substance: EMTRICITABINE\TENOFOVIR DISOPROXIL FUMARATE
     Indication: HIV INFECTION
     Dosage: 25 UNK, UNK
     Route: 065
     Dates: start: 200807, end: 201109
  8. RALTEGRAVIR. [Suspect]
     Active Substance: RALTEGRAVIR
     Dosage: 800 MG, QD
     Route: 065
     Dates: start: 201601

REACTIONS (2)
  - Renal tubular disorder [Unknown]
  - Porphyria [Unknown]

NARRATIVE: CASE EVENT DATE: 201109
